FAERS Safety Report 23348311 (Version 1)
Quarter: 2023Q4

REPORT INFORMATION
  Report Type: Spontaneous
  Country: JP (occurrence: JP)
  Receive Date: 20231228
  Receipt Date: 20231228
  Transmission Date: 20240110
  Serious: Yes (Life-Threatening)
  Sender: FDA-Public Use
  Company Number: JP-SERVIER-S23014785

PATIENT

DRUGS (2)
  1. ONCASPAR [Suspect]
     Active Substance: PEGASPARGASE
     Indication: Product used for unknown indication
     Dosage: UNK
     Route: 042
     Dates: start: 20231104, end: 20231104
  2. ONCASPAR [Suspect]
     Active Substance: PEGASPARGASE
     Dosage: UNK
     Route: 042
     Dates: start: 202312, end: 202312

REACTIONS (2)
  - Anaphylactic reaction [Recovered/Resolved]
  - Inappropriate schedule of product administration [Recovered/Resolved]

NARRATIVE: CASE EVENT DATE: 20231201
